FAERS Safety Report 24004832 (Version 1)
Quarter: 2024Q2

REPORT INFORMATION
  Report Type: Spontaneous
  Country: IT (occurrence: IT)
  Receive Date: 20240624
  Receipt Date: 20240624
  Transmission Date: 20240715
  Serious: Yes (Other)
  Sender: FDA-Public Use
  Company Number: None

PATIENT
  Age: 57 Year
  Sex: Female

DRUGS (2)
  1. EPIRUBICIN [Suspect]
     Active Substance: EPIRUBICIN
     Indication: Breast cancer
     Dosage: START OF THERAPY 12/19/23 - THERAPY EVERY 14 DAYS - III CYCLE
     Route: 042
     Dates: start: 20240123, end: 20240123
  2. CYCLOPHOSPHAMIDE [Suspect]
     Active Substance: CYCLOPHOSPHAMIDE
     Indication: Breast cancer
     Dosage: DECREASED HEMOGLOBIN, LEFT FOOT SKIN TOXICITY, FOOT NEUROPATHY
     Route: 042
     Dates: start: 20240123, end: 20240123

REACTIONS (3)
  - Neuropathy peripheral [Recovering/Resolving]
  - Skin reaction [Recovering/Resolving]
  - Haemoglobin decreased [Recovering/Resolving]

NARRATIVE: CASE EVENT DATE: 20240101
